FAERS Safety Report 6188056-X (Version None)
Quarter: 2009Q2

REPORT INFORMATION
  Report Type: 
  Country: None (occurrence: None)
  Receive Date: 20090513
  Receipt Date: 20090506
  Transmission Date: 20091009
  Serious: Yes (Hospitalization)
  Sender: FDA-Public Use
  Company Number: PHHO2009CO05096

PATIENT
  Sex: Male
  Weight: 65 kg

DRUGS (2)
  1. CGP 57148B T35717+ [Suspect]
     Indication: CHRONIC MYELOID LEUKAEMIA
     Dosage: 400 MG, QD
     Route: 048
     Dates: start: 20030701
  2. ENALAPRIL MALEATE [Concomitant]
     Indication: HYPERTENSION

REACTIONS (4)
  - ABDOMINAL PAIN [None]
  - GASTROINTESTINAL HAEMORRHAGE [None]
  - MALLORY-WEISS SYNDROME [None]
  - OESOPHAGITIS [None]
